FAERS Safety Report 8543646-1 (Version None)
Quarter: 2012Q3

REPORT INFORMATION
  Report Type: 
  Country: None (occurrence: None)
  Receive Date: 20120727
  Receipt Date: 20120718
  Transmission Date: 20120928
  Serious: Yes (Death, Hospitalization)
  Sender: FDA-Public Use
  Company Number: JP-PFIZER INC-2012178649

PATIENT
  Age: 85 Year
  Sex: Male
  Weight: 45.3 kg

DRUGS (6)
  1. NITROGLYCERIN [Concomitant]
     Dosage: 25 MG, UNK
  2. ARGATROBAN [Suspect]
     Indication: ANTICOAGULANT THERAPY
     Dosage: UNK
     Route: 051
  3. ALFACALCIDOL [Concomitant]
     Dosage: 0.25 UG, UNK
  4. CALCIUM CARBONATE [Concomitant]
     Dosage: 1000 MG, UNK
  5. WARFARIN [Concomitant]
     Dosage: 2.5 MG, UNK
  6. LANSOPRAZOLE [Concomitant]
     Dosage: 15 MG, UNK

REACTIONS (2)
  - HAEMORRHAGE [None]
  - CARDIO-RESPIRATORY ARREST [None]
